FAERS Safety Report 8692418 (Version 2)
Quarter: 2013Q4

REPORT INFORMATION
  Report Type: Spontaneous
  Country: US (occurrence: US)
  Receive Date: 20120730
  Receipt Date: 20131101
  Transmission Date: 20140711
  Serious: No
  Sender: FDA-Public Use
  Company Number: US-009507513-1207USA011152

PATIENT
  Age: 13 Year
  Sex: Male

DRUGS (1)
  1. CLARITIN REDITABS [Suspect]
     Indication: PRODUCT USED FOR UNKNOWN INDICATION
     Dosage: 20 MG, ONCE
     Route: 048

REACTIONS (1)
  - Accidental overdose [Unknown]
